FAERS Safety Report 9477950 (Version 1)
Quarter: 2013Q3

REPORT INFORMATION
  Report Type: Spontaneous
  Country: US (occurrence: None)
  Receive Date: 20130826
  Receipt Date: 20130826
  Transmission Date: 20140515
  Serious: No
  Sender: FDA-Public Use
  Company Number: None

PATIENT
  Age: 54 Year
  Sex: Male
  Weight: 85 kg

DRUGS (1)
  1. NAFCILLIN [Suspect]
     Route: 042
     Dates: start: 20130506, end: 20130509

REACTIONS (1)
  - Tubulointerstitial nephritis [None]
